FAERS Safety Report 4291380-9 (Version None)
Quarter: 2004Q1

REPORT INFORMATION
  Report Type: 
  Country: None (occurrence: None)
  Receive Date: 20040126
  Receipt Date: 20030912
  Transmission Date: 20041129
  Serious: No
  Sender: FDA-Public Use
  Company Number: USA030947125

PATIENT
  Age: 80 Year
  Sex: Female

DRUGS (1)
  1. FORTEO [Suspect]
     Dates: start: 20030401

REACTIONS (5)
  - ARTHRALGIA [None]
  - JOINT SWELLING [None]
  - MUSCLE CRAMP [None]
  - OEDEMA PERIPHERAL [None]
  - PAIN IN EXTREMITY [None]
